FAERS Safety Report 7304485-2 (Version None)
Quarter: 2011Q1

REPORT INFORMATION
  Report Type: 
  Country: None (occurrence: None)
  Receive Date: 20110221
  Receipt Date: 20110216
  Transmission Date: 20110831
  Serious: Yes (Hospitalization, Disabling)
  Sender: FDA-Public Use
  Company Number: DE-MERCK-1102DEU00082

PATIENT
  Age: 69 Year
  Sex: Male

DRUGS (13)
  1. CANDESARTAN CILEXETIL [Concomitant]
     Route: 048
  2. PREGABALIN [Concomitant]
     Route: 048
  3. CALCIPOTRIENE [Concomitant]
     Route: 061
  4. LEVOTHYROXINE SODIUM [Concomitant]
     Route: 048
  5. SPIRONOLACTONE [Concomitant]
     Route: 048
  6. TORSEMIDE [Concomitant]
     Route: 048
  7. LOVASTATIN [Concomitant]
     Route: 048
  8. INSULIN ASPART [Concomitant]
     Route: 058
  9. JANUVIA [Suspect]
     Indication: TYPE 2 DIABETES MELLITUS
     Route: 048
     Dates: start: 20100101, end: 20110209
  10. ALLOPURINOL [Concomitant]
     Route: 048
  11. ASPIRIN [Concomitant]
     Route: 048
  12. CICLOPIROX OLAMINE [Concomitant]
     Route: 061
  13. BETAMETHASONE DIPROPIONATE AND CLOTRIMAZOLE [Concomitant]
     Route: 061

REACTIONS (2)
  - PSORIASIS [None]
  - ACNE [None]
